FAERS Safety Report 7468432-5 (Version None)
Quarter: 2011Q2

REPORT INFORMATION
  Report Type: 
  Country: None (occurrence: None)
  Receive Date: 20110509
  Receipt Date: 20110427
  Transmission Date: 20111010
  Serious: Yes (Other)
  Sender: FDA-Public Use
  Company Number: GB-BAUSCH-2011BL002742

PATIENT
  Age: 71 Year
  Sex: Male

DRUGS (4)
  1. CYCLOPENTOLATE HCL [Suspect]
     Indication: MYDRIASIS
     Route: 047
  2. DEXAMETHASONE [Concomitant]
     Indication: EYE OPERATION
     Route: 057
  3. ATROPINE [Suspect]
     Indication: MYDRIASIS
     Route: 047
  4. GENTAMICIN [Concomitant]
     Indication: EYE OPERATION
     Route: 057

REACTIONS (3)
  - IRIS ADHESIONS [None]
  - PUPIL FIXED [None]
  - INTRAOCULAR PRESSURE INCREASED [None]
